FAERS Safety Report 9217943 (Version 3)
Quarter: 2013Q4

REPORT INFORMATION
  Report Type: Spontaneous
  Country: JP (occurrence: JP)
  Receive Date: 20130408
  Receipt Date: 20131021
  Transmission Date: 20140711
  Serious: Yes (Hospitalization, Other)
  Sender: FDA-Public Use
  Company Number: PHHY2013JP033153

PATIENT
  Age: 64 Year
  Sex: Female

DRUGS (9)
  1. CICLOSPORIN [Suspect]
     Indication: SYSTEMIC LUPUS ERYTHEMATOSUS
     Dosage: UNK UKN, UNK
  2. CIBENZOLINE SUCCINATE [Interacting]
     Indication: HYPERTROPHIC CARDIOMYOPATHY
     Dosage: UNK UKN, UNK
  3. PREDNISOLONE [Concomitant]
  4. ATENOLOL [Concomitant]
  5. LOSARTAN POTASSIUM [Concomitant]
  6. MIZORIBINE [Concomitant]
  7. PRAVASTATIN [Concomitant]
  8. EZETIMIBE [Concomitant]
  9. LANSOPRAZOLE [Concomitant]

REACTIONS (6)
  - Ventricular tachycardia [Recovering/Resolving]
  - Syncope [Unknown]
  - Chest discomfort [Unknown]
  - Haemodynamic instability [Unknown]
  - Drug level increased [Recovered/Resolved]
  - Drug interaction [Unknown]
